FAERS Safety Report 4570612-3 (Version None)
Quarter: 2005Q1

REPORT INFORMATION
  Report Type: 
  Country: None (occurrence: None)
  Receive Date: 20050202
  Receipt Date: 20050202
  Transmission Date: 20050727
  Serious: Yes (Life-Threatening)
  Sender: FDA-Public Use
  Company Number: None

PATIENT
  Sex: Female
  Weight: 108 kg

DRUGS (7)
  1. CYMBALTA [Suspect]
     Indication: DEPRESSION
     Dosage: ORAL
     Route: 048
     Dates: start: 20040701, end: 20050101
  2. CYMBALTA [Suspect]
     Indication: PAIN
     Dosage: ORAL
     Route: 048
     Dates: start: 20040701, end: 20050101
  3. METHADONE   100MG/DAY [Suspect]
     Indication: RIB FRACTURE
     Dosage: 100MG   Q 24 HR DIVIDE   ORAL
     Route: 048
     Dates: start: 20041001, end: 20050101
  4. METHADONE   100MG/DAY [Suspect]
     Indication: SCOLIOSIS
     Dosage: 100MG   Q 24 HR DIVIDE   ORAL
     Route: 048
     Dates: start: 20041001, end: 20050101
  5. METHADONE HCL [Concomitant]
  6. CYMBALTA [Concomitant]
  7. 20 CIGARETTES [Concomitant]

REACTIONS (2)
  - ENCEPHALOPATHY [None]
  - HEPATITIS [None]
